FAERS Safety Report 22659228 (Version 1)
Quarter: 2023Q2

REPORT INFORMATION
  Report Type: Spontaneous
  Country: US (occurrence: US)
  Receive Date: 20230630
  Receipt Date: 20230630
  Transmission Date: 20230722
  Serious: Yes (Death, Other)
  Sender: FDA-Public Use
  Company Number: US-GSK-US2023088534

PATIENT

DRUGS (1)
  1. ANORO ELLIPTA [Suspect]
     Active Substance: UMECLIDINIUM BROMIDE\VILANTEROL TRIFENATATE
     Indication: Chronic obstructive pulmonary disease
     Dosage: 62.525MCG INH 60
     Route: 055

REACTIONS (3)
  - Death [Fatal]
  - Hypotension [Unknown]
  - Infection [Unknown]

NARRATIVE: CASE EVENT DATE: 20230625
